FAERS Safety Report 5217874-7 (Version None)
Quarter: 2007Q1

REPORT INFORMATION
  Report Type: 
  Country: None (occurrence: None)
  Receive Date: 20061130
  Receipt Date: 20060731
  Transmission Date: 20070707
  Serious: Yes (Other)
  Sender: FDA-Public Use
  Company Number: US200608000480

PATIENT
  Age: 56 Year
  Sex: Male
  Weight: 74.8 kg

DRUGS (4)
  1. ZYPREXA [Suspect]
     Dosage: 10 MG. 15, 45 MG
     Dates: start: 19980918, end: 20001206
  2. ZYPREXA [Suspect]
     Dosage: 10 MG. 15, 45 MG
     Dates: start: 20001206, end: 20010123
  3. ZYPREXA [Suspect]
     Dosage: 10 MG. 15, 45 MG
     Dates: start: 20010123, end: 20020124
  4. CARBAZEPINE [Concomitant]

REACTIONS (2)
  - PANCREATITIS [None]
  - PRESCRIBED OVERDOSE [None]
